FAERS Safety Report 7411053-0 (Version None)
Quarter: 2011Q2

REPORT INFORMATION
  Report Type: 
  Country: None (occurrence: None)
  Receive Date: 20110413
  Receipt Date: 20110405
  Transmission Date: 20111010
  Serious: Yes (Hospitalization)
  Sender: FDA-Public Use
  Company Number: FR-ASTELLAS-2011EU001809

PATIENT
  Sex: Male

DRUGS (4)
  1. PROGRAF [Suspect]
     Indication: LIVER TRANSPLANT
     Dosage: UNK
     Route: 048
     Dates: start: 20110120
  2. VIREAD [Suspect]
     Indication: HEPATITIS VIRAL
     Dosage: 245 MG, UID/QD
     Route: 048
     Dates: start: 20110120
  3. CORTANCYL [Suspect]
     Indication: LIVER TRANSPLANT
     Dosage: 20 MG, UID/QD
     Route: 048
     Dates: start: 20110123
  4. CELLCEPT [Suspect]
     Indication: LIVER TRANSPLANT
     Dosage: 1.5 G, BID
     Route: 048
     Dates: start: 20110120

REACTIONS (1)
  - PERSECUTORY DELUSION [None]
